FAERS Safety Report 8548503-2 (Version None)
Quarter: 2012Q3

REPORT INFORMATION
  Report Type: 
  Country: None (occurrence: None)
  Receive Date: 20120717
  Receipt Date: 20120703
  Transmission Date: 20120928
  Serious: Yes (Other)
  Sender: FDA-Public Use
  Company Number: FK201201875

PATIENT
  Age: 67 Year
  Sex: Male

DRUGS (4)
  1. OXALIPLATIN [Suspect]
     Indication: COLON CANCER STAGE IV
     Dosage: 100 MG/M2, INTRAVENOUS (NOT OTHERWISE SPECIFIED)
     Route: 042
  2. FLUOROURACIL [Suspect]
     Dosage: MG/M2, 2,400 TO 3,000 MG/M2 EVERY 46 HOURS, INTRAVENOUS (NOT OTHERWISE SPECIFIED)
     Route: 042
  3. FLUOROURACIL [Suspect]
     Indication: COLON CANCER STAGE IV
     Dosage: 400 MG/M2, INTRAVENOUS BOLUS
     Route: 040
  4. LEUCOVORIN CALCIUM [Suspect]
     Indication: COLON CANCER STAGE IV
     Dosage: 200 MG/M2, INTRAVENOUS (NOT OTHERWISE SPECIFIED) ; 400 MG/M2, INTRAVENOUS (NOT OTHERWISE SPECIFIED)
     Route: 042

REACTIONS (1)
  - NEUTROPENIA [None]
